FAERS Safety Report 17192677 (Version 3)
Quarter: 2020Q4

REPORT INFORMATION
  Report Type: Spontaneous
  Country: US (occurrence: US)
  Receive Date: 20191223
  Receipt Date: 20201008
  Transmission Date: 20210113
  Serious: No
  Sender: FDA-Public Use
  Company Number: US-SA-2019SA349759

PATIENT

DRUGS (1)
  1. FERRLECIT [Suspect]
     Active Substance: SODIUM FERRIC GLUCONATE COMPLEX
     Dosage: UNK
     Dates: start: 20191203, end: 20191203

REACTIONS (4)
  - Flank pain [Unknown]
  - Hypersensitivity [Unknown]
  - Muscle tightness [Unknown]
  - Pruritus [Unknown]
